FAERS Safety Report 5445680-7 (Version None)
Quarter: 2007Q3

REPORT INFORMATION
  Report Type: 
  Country: None (occurrence: None)
  Receive Date: 20070906
  Receipt Date: 20070906
  Transmission Date: 20080115
  Serious: Yes (Death, Hospitalization)
  Sender: FDA-Public Use
  Company Number: CA-GENENTECH-245363

PATIENT

DRUGS (5)
  1. TENECTEPLASE [Suspect]
     Indication: CHEST PAIN
     Route: 065
  2. ASPIRIN [Suspect]
     Indication: CHEST PAIN
     Route: 065
  3. HEPARIN [Suspect]
     Indication: CHEST PAIN
     Route: 065
  4. CLOPIDOGREL [Suspect]
     Indication: CHEST PAIN
     Dosage: 300 MG, UNK
     Route: 040
  5. CLOPIDOGREL [Suspect]
     Dosage: 75 MG, UNK
     Route: 065

REACTIONS (2)
  - DEATH [None]
  - POST PROCEDURAL COMPLICATION [None]
